FAERS Safety Report 19961113 (Version 1)
Quarter: 2021Q4

REPORT INFORMATION
  Report Type: Spontaneous
  Country: IT (occurrence: IT)
  Receive Date: 20211016
  Receipt Date: 20211016
  Transmission Date: 20220303
  Serious: Yes (Hospitalization)
  Sender: FDA-Public Use
  Company Number: IT-NOVARTISPH-NVSC2021IT233198

PATIENT
  Sex: Male

DRUGS (5)
  1. BROLUCIZUMAB [Suspect]
     Active Substance: BROLUCIZUMAB
     Indication: Product used for unknown indication
     Dosage: 6 MG, QMO
     Route: 065
     Dates: start: 20210215
  2. BROLUCIZUMAB [Suspect]
     Active Substance: BROLUCIZUMAB
     Dosage: 6 MG, QMO
     Route: 065
     Dates: start: 20210317
  3. BROLUCIZUMAB [Suspect]
     Active Substance: BROLUCIZUMAB
     Dosage: 6 MG, QMO
     Route: 065
     Dates: start: 20210421
  4. BROLUCIZUMAB [Suspect]
     Active Substance: BROLUCIZUMAB
     Dosage: 6 MG, QMO
     Route: 065
     Dates: start: 20210616
  5. BROLUCIZUMAB [Suspect]
     Active Substance: BROLUCIZUMAB
     Dosage: 6 MG, QMO
     Route: 065
     Dates: start: 20210901

REACTIONS (1)
  - Osteoarthritis [Unknown]
